FAERS Safety Report 14912238 (Version 1)
Quarter: 2018Q2

REPORT INFORMATION
  Report Type: Spontaneous
  Country: US (occurrence: US)
  Receive Date: 20180501
  Receipt Date: 20180501
  Transmission Date: 20180711
  Serious: Yes (Disabling)
  Sender: FDA-Public Use
  Company Number: None

PATIENT
  Age: 29 Year
  Sex: Female
  Weight: 48.15 kg

DRUGS (1)
  1. CIPROFLOXACIN. [Suspect]
     Active Substance: CIPROFLOXACIN
     Indication: URINARY TRACT INFECTION
     Dosage: ?          QUANTITY:1 TABLET(S);?
     Route: 048
     Dates: start: 20180425, end: 20180429

REACTIONS (6)
  - Nausea [None]
  - Burning sensation [None]
  - Joint stiffness [None]
  - Neuropathy peripheral [None]
  - Musculoskeletal stiffness [None]
  - Depression [None]

NARRATIVE: CASE EVENT DATE: 20180427
